FAERS Safety Report 24552952 (Version 2)
Quarter: 2024Q4

REPORT INFORMATION
  Report Type: Spontaneous
  Country: JP (occurrence: JP)
  Receive Date: 20241027
  Receipt Date: 20241122
  Transmission Date: 20250115
  Serious: Yes (Other)
  Sender: VIIV
  Company Number: JP-ViiV Healthcare-89268

PATIENT

DRUGS (1)
  1. DOVATO [Suspect]
     Active Substance: DOLUTEGRAVIR SODIUM\LAMIVUDINE
     Dosage: UNK, 1D

REACTIONS (2)
  - Pneumonia aspiration [Not Recovered/Not Resolved]
  - Dysphagia [Not Recovered/Not Resolved]
